FAERS Safety Report 10997010 (Version 5)
Quarter: 2015Q3

REPORT INFORMATION
  Report Type: Report from Study
  Country: US (occurrence: None)
  Receive Date: 20150406
  Receipt Date: 20150831
  Transmission Date: 20151125
  Serious: Yes (Death, Hospitalization, Other)
  Sender: FDA-Public Use
  Company Number: ADR-2014-01833

PATIENT
  Age: 30 Year
  Sex: Female

DRUGS (5)
  1. INTRATHECAL CLONIDINE [Suspect]
     Active Substance: CLONIDINE
     Dosage: 19.99MCG/DAY?
  2. INTRATHECAL MORPHINE [Suspect]
     Active Substance: MORPHINE
     Dosage: 3.751 MG/DAY
  3. DILAUDID [Suspect]
     Active Substance: HYDROMORPHONE HYDROCHLORIDE
     Indication: CANCER PAIN
     Dosage: 0.5995MCG/DAY
  4. COMPOUNDED BACLOFEN INTRATHECAL [Suspect]
     Active Substance: BACLOFEN
     Indication: CANCER PAIN
     Dosage: 49.96MCG/DAY
  5. INTRATHECAL BUPIVACAINE [Suspect]
     Active Substance: BUPIVACAINE
     Dosage: 3.997MG/DAY?

REACTIONS (18)
  - Neoplasm progression [None]
  - Haemorrhage [None]
  - Paraesthesia [None]
  - Burning sensation [None]
  - Urinary retention [None]
  - Tremor [None]
  - Nervousness [None]
  - Catheter site mass [None]
  - Muscular weakness [None]
  - Hypoaesthesia [None]
  - Abasia [None]
  - Procedural pain [None]
  - Dyspnoea [None]
  - Procedural headache [None]
  - Pruritus [None]
  - Procedural nausea [None]
  - Hypotension [None]
  - Infrequent bowel movements [None]

NARRATIVE: CASE EVENT DATE: 20140822
